FAERS Safety Report 19992598 (Version 1)
Quarter: 2021Q4

REPORT INFORMATION
  Report Type: Spontaneous
  Country: CN (occurrence: CN)
  Receive Date: 20211026
  Receipt Date: 20211026
  Transmission Date: 20220304
  Serious: Yes (Other)
  Sender: FDA-Public Use
  Company Number: CN-BRISTOL-MYERS SQUIBB COMPANY-BMS-2021-106903

PATIENT
  Age: 39 Year
  Sex: Male
  Weight: 75 kg

DRUGS (1)
  1. BARACLUDE [Suspect]
     Active Substance: ENTECAVIR
     Indication: Hepatitis B
     Dosage: 0.5 MILLIGRAM, QD
     Route: 048

REACTIONS (3)
  - Viral load increased [Unknown]
  - Drug ineffective [Unknown]
  - Product packaging quantity issue [Unknown]
